FAERS Safety Report 9901252 (Version 1)
Quarter: 2014Q1

REPORT INFORMATION
  Report Type: Spontaneous
  Country: JP (occurrence: JP)
  Receive Date: 20140217
  Receipt Date: 20140217
  Transmission Date: 20141002
  Serious: Yes (Other)
  Sender: FDA-Public Use
  Company Number: US-ASTRAZENECA-2014SE10972

PATIENT
  Age: 67 Year
  Sex: Female

DRUGS (3)
  1. BLOPRESS [Suspect]
     Route: 048
  2. PHENOBARBITAL [Suspect]
     Dosage: UNK
     Route: 065
  3. FAMOTIDINE [Suspect]
     Dosage: UNK
     Route: 065

REACTIONS (1)
  - Stevens-Johnson syndrome [Unknown]
